FAERS Safety Report 5794881-7 (Version None)
Quarter: 2008Q2

REPORT INFORMATION
  Report Type: 
  Country: None (occurrence: None)
  Receive Date: 20080627
  Receipt Date: 20080627
  Transmission Date: 20081010
  Serious: No
  Sender: FDA-Public Use
  Company Number: None

PATIENT
  Age: 27 Year
  Sex: Female
  Weight: 74.8435 kg

DRUGS (2)
  1. PHENTERMINE [Suspect]
     Indication: OBESITY
     Dosage: 30 MG 1 DAY PO
     Route: 048
     Dates: start: 19960501, end: 19961102
  2. FENFLURAMINE [Suspect]
     Indication: OBESITY
     Dosage: NEED TO CHECK 3 TIMES A DAY PO
     Route: 048
     Dates: start: 19960501, end: 19961102

REACTIONS (6)
  - AMNESIA [None]
  - ANXIETY [None]
  - DEPRESSION [None]
  - FATIGUE [None]
  - INSOMNIA [None]
  - MIGRAINE [None]
